FAERS Safety Report 6599383-6 (Version None)
Quarter: 2010Q1

REPORT INFORMATION
  Report Type: 
  Country: None (occurrence: None)
  Receive Date: 20100224
  Receipt Date: 20100216
  Transmission Date: 20100710
  Serious: Yes (Hospitalization)
  Sender: FDA-Public Use
  Company Number: US-JNJFOC-20091207287

PATIENT
  Sex: Male
  Weight: 90.72 kg

DRUGS (31)
  1. REMICADE [Suspect]
     Indication: CROHN'S DISEASE
     Dosage: 27 INFUSIONS
     Route: 042
     Dates: end: 20081111
  2. REMICADE [Suspect]
     Route: 042
     Dates: end: 20081111
  3. REMICADE [Suspect]
     Dosage: 27 INFUSIONS
     Route: 042
     Dates: end: 20081111
  4. REMICADE [Suspect]
     Dosage: 27 INFUSIONS
     Route: 042
     Dates: end: 20081111
  5. REMICADE [Suspect]
     Dosage: 27 INFUSIONS
     Route: 042
     Dates: end: 20081111
  6. REMICADE [Suspect]
     Dosage: 27 INFUSIONS
     Route: 042
     Dates: end: 20081111
  7. REMICADE [Suspect]
     Dosage: 27 INFUSIONS
     Route: 042
     Dates: end: 20081111
  8. REMICADE [Suspect]
     Dosage: 27 INFUSIONS
     Route: 042
     Dates: end: 20081111
  9. REMICADE [Suspect]
     Dosage: 27 INFUSIONS
     Route: 042
     Dates: end: 20081111
  10. REMICADE [Suspect]
     Dosage: 27 INFUSIONS
     Route: 042
     Dates: end: 20081111
  11. REMICADE [Suspect]
     Dosage: 27 INFUSIONS
     Route: 042
     Dates: end: 20081111
  12. REMICADE [Suspect]
     Dosage: 27 INFUSIONS
     Route: 042
     Dates: end: 20081111
  13. REMICADE [Suspect]
     Dosage: 27 INFUSIONS
     Route: 042
     Dates: end: 20081111
  14. REMICADE [Suspect]
     Dosage: 27 INFUSIONS
     Route: 042
     Dates: end: 20081111
  15. REMICADE [Suspect]
     Dosage: 27 INFUSIONS
     Route: 042
     Dates: end: 20081111
  16. REMICADE [Suspect]
     Dosage: 27 INFUSIONS
     Route: 042
     Dates: end: 20081111
  17. REMICADE [Suspect]
     Dosage: 27 INFUSIONS
     Route: 042
     Dates: end: 20081111
  18. REMICADE [Suspect]
     Dosage: 27 INFUSIONS
     Route: 042
     Dates: end: 20081111
  19. REMICADE [Suspect]
     Dosage: 27 INFUSIONS
     Route: 042
     Dates: end: 20081111
  20. REMICADE [Suspect]
     Dosage: 27 INFUSIONS
     Route: 042
     Dates: end: 20081111
  21. REMICADE [Suspect]
     Dosage: 27 INFUSIONS
     Route: 042
     Dates: end: 20081111
  22. REMICADE [Suspect]
     Dosage: 27 INFUSIONS
     Route: 042
     Dates: end: 20081111
  23. REMICADE [Suspect]
     Dosage: 27 INFUSIONS
     Route: 042
     Dates: end: 20081111
  24. REMICADE [Suspect]
     Dosage: 27 INFUSIONS
     Route: 042
     Dates: end: 20081111
  25. REMICADE [Suspect]
     Dosage: 27 INFUSIONS
     Route: 042
     Dates: end: 20081111
  26. REMICADE [Suspect]
     Dosage: 27 INFUSIONS
     Route: 042
     Dates: end: 20081111
  27. REMICADE [Suspect]
     Dosage: 4 INFUSIONS PRIOR TO BASELINE
     Route: 042
     Dates: end: 20081111
  28. REMICADE [Suspect]
     Dosage: 27 INFUSIONS
     Route: 042
     Dates: end: 20081111
  29. MERCAPTOPURINE [Suspect]
     Indication: CROHN'S DISEASE
  30. MESALAMINE [Concomitant]
     Indication: CROHN'S DISEASE
  31. ANTIBIOTICS [Concomitant]
     Indication: CROHN'S DISEASE

REACTIONS (1)
  - PROSTATE CANCER [None]
